FAERS Safety Report 19932278 (Version 1)
Quarter: 2021Q4

REPORT INFORMATION
  Report Type: Spontaneous
  Country: US (occurrence: US)
  Receive Date: 20211007
  Receipt Date: 20211007
  Transmission Date: 20220303
  Serious: No
  Sender: FDA-Public Use
  Company Number: None

PATIENT
  Age: 66 Year
  Sex: Male
  Weight: 90 kg

DRUGS (1)
  1. REGEN-COV [Suspect]
     Active Substance: CASIRIVIMAB\IMDEVIMAB
     Indication: COVID-19
     Dosage: ?QUANTITY:4 INJECTION(S);?OTHER ROUTE:INJECTED UNDER THE SKIN
     Route: 058

REACTIONS (2)
  - Chills [None]
  - Ageusia [None]

NARRATIVE: CASE EVENT DATE: 20210929
